FAERS Safety Report 15474975 (Version 1)
Quarter: 2018Q4

REPORT INFORMATION
  Report Type: Spontaneous
  Country: US (occurrence: US)
  Receive Date: 20181008
  Receipt Date: 20181008
  Transmission Date: 20190205
  Serious: Yes (Death, Other)
  Sender: FDA-Public Use
  Company Number: US-TEVA-2018-US-961750

PATIENT
  Age: 72 Year
  Sex: Male

DRUGS (2)
  1. WARFARIN [Suspect]
     Active Substance: WARFARIN
     Indication: ATRIAL FIBRILLATION
     Route: 065
  2. SEVELAMER [Concomitant]
     Active Substance: SEVELAMER
     Route: 065

REACTIONS (3)
  - Superinfection [Unknown]
  - Septic shock [Fatal]
  - Calciphylaxis [Unknown]
